FAERS Safety Report 10552028 (Version 2)
Quarter: 2014Q4

REPORT INFORMATION
  Report Type: Spontaneous
  Country: JP (occurrence: JP)
  Receive Date: 20141029
  Receipt Date: 20141029
  Transmission Date: 20150529
  Serious: Yes (Hospitalization, Other)
  Sender: FDA-Public Use
  Company Number: JP-WATSON-2014-21933

PATIENT
  Age: 20 Year
  Sex: Male
  Weight: 61 kg

DRUGS (11)
  1. PREDNISOLONE (UNKNOWN) [Suspect]
     Active Substance: PREDNISOLONE
     Indication: RENAL TRANSPLANT
     Dosage: 15 UNK, UNK
     Route: 065
  2. MYCOPHENOLATE MOFETIL (UNKNOWN) [Interacting]
     Active Substance: MYCOPHENOLATE MOFETIL
     Dosage: 2000 MG, DAILY
     Route: 065
  3. TACROLIMUS (UNKNOWN) [Suspect]
     Active Substance: TACROLIMUS
     Indication: RENAL TRANSPLANT
     Dosage: 6 MG, DAILY
     Route: 065
  4. MYCOPHENOLATE MOFETIL (UNKNOWN) [Suspect]
     Active Substance: MYCOPHENOLATE MOFETIL
     Indication: RENAL TRANSPLANT
     Dosage: 500 MG, DAILY
     Route: 065
  5. PREDNISOLONE (UNKNOWN) [Suspect]
     Active Substance: PREDNISOLONE
     Dosage: 30 UNK, UNK
     Route: 065
  6. PREDNISOLONE (UNKNOWN) [Suspect]
     Active Substance: PREDNISOLONE
     Dosage: 40 MG, DAILY
     Route: 065
  7. PREDNISOLONE (UNKNOWN) [Suspect]
     Active Substance: PREDNISOLONE
     Dosage: 25 MG, DAILY
     Route: 065
  8. RITUXIMAB [Interacting]
     Active Substance: RITUXIMAB
     Indication: RENAL TRANSPLANT
     Dosage: 300 MG, SINGLE
     Route: 065
  9. MYCOPHENOLATE MOFETIL (UNKNOWN) [Interacting]
     Active Substance: MYCOPHENOLATE MOFETIL
     Dosage: 1000 MG, DAILY
     Route: 065
  10. PREDNISOLONE (UNKNOWN) [Suspect]
     Active Substance: PREDNISOLONE
     Dosage: 20 UNK, UNK
     Route: 005
  11. BASILIXIMAB [Suspect]
     Active Substance: BASILIXIMAB
     Indication: RENAL TRANSPLANT
     Dosage: 20 MG/BODY,UNK
     Route: 065

REACTIONS (7)
  - Pseudomonas infection [Recovered/Resolved]
  - Potentiating drug interaction [Unknown]
  - Immunosuppressant drug level increased [Unknown]
  - Pancytopenia [Recovered/Resolved]
  - Agranulocytosis [Recovered/Resolved]
  - Cytomegalovirus colitis [Recovered/Resolved]
  - Alopecia [Recovered/Resolved]
